FAERS Safety Report 19600967 (Version 8)
Quarter: 2022Q1

REPORT INFORMATION
  Report Type: Spontaneous
  Country: US (occurrence: US)
  Receive Date: 20210723
  Receipt Date: 20220222
  Transmission Date: 20220423
  Serious: Yes (Hospitalization)
  Sender: FDA-Public Use
  Company Number: US-SA-SAC20210722001043

PATIENT
  Age: 45 Year
  Sex: Female

DRUGS (4)
  1. FABRAZYME [Suspect]
     Active Substance: AGALSIDASE BETA
     Indication: Fabry^s disease
     Dosage: 140 MG, QOW
     Route: 041
     Dates: start: 2019
  2. FABRAZYME [Suspect]
     Active Substance: AGALSIDASE BETA
     Dosage: 10 MG, QOW
     Route: 041
  3. FABRAZYME [Suspect]
     Active Substance: AGALSIDASE BETA
     Dosage: 140 MG, QOW
     Route: 041
     Dates: start: 202105, end: 20220131
  4. LYRICA [Concomitant]
     Active Substance: PREGABALIN
     Dosage: 150 MG, BID
     Dates: start: 202201

REACTIONS (5)
  - Ill-defined disorder [Unknown]
  - Therapeutic procedure [Unknown]
  - Disease progression [Unknown]
  - Intentional dose omission [Unknown]
  - Product dose omission issue [Unknown]

NARRATIVE: CASE EVENT DATE: 20210719
